FAERS Safety Report 18440150 (Version 1)
Quarter: 2020Q4

REPORT INFORMATION
  Report Type: Spontaneous
  Country: CA (occurrence: CA)
  Receive Date: 20201029
  Receipt Date: 20201029
  Transmission Date: 20210114
  Serious: Yes (Other)
  Sender: FDA-Public Use
  Company Number: None

PATIENT
  Age: 52 Year
  Sex: Female
  Weight: 51.75 kg

DRUGS (5)
  1. VAGIFEM [Concomitant]
     Active Substance: ESTRADIOL
  2. GUMMIES [Concomitant]
  3. TRINTELLIX [Suspect]
     Active Substance: VORTIOXETINE HYDROBROMIDE
     Indication: DEPRESSION
     Dosage: ?          QUANTITY:1 TABLET(S);?
     Route: 048
  4. DAILY VITAMINS [Concomitant]
     Active Substance: VITAMINS
  5. TRINTELLIX [Suspect]
     Active Substance: VORTIOXETINE HYDROBROMIDE
     Indication: ANXIETY
     Dosage: ?          QUANTITY:1 TABLET(S);?
     Route: 048

REACTIONS (12)
  - Tinnitus [None]
  - Anxiety [None]
  - Withdrawal syndrome [None]
  - Influenza like illness [None]
  - Depression [None]
  - Paraesthesia [None]
  - Dysgeusia [None]
  - Insomnia [None]
  - Headache [None]
  - Fatigue [None]
  - Dizziness [None]
  - Mood swings [None]

NARRATIVE: CASE EVENT DATE: 20201022
